FAERS Safety Report 15872442 (Version 3)
Quarter: 2022Q2

REPORT INFORMATION
  Report Type: Spontaneous
  Country: US (occurrence: US)
  Receive Date: 20190126
  Receipt Date: 20220603
  Transmission Date: 20220721
  Serious: Yes (Hospitalization, Other)
  Sender: FDA-Public Use
  Company Number: US-ACORDA-ACO_148197_2018

PATIENT
  Sex: Male

DRUGS (2)
  1. AMPYRA [Suspect]
     Active Substance: DALFAMPRIDINE
     Indication: Multiple sclerosis
     Dosage: 10 MG, BID
     Route: 048
     Dates: start: 20110913
  2. TYSABRI [Concomitant]
     Active Substance: NATALIZUMAB
     Indication: Multiple sclerosis
     Dosage: TOOK TYSABRI FOR 14 YEARS AND WAS DISCONTINUED DUE TO JCV TITERS
     Route: 065

REACTIONS (5)
  - Staphylococcal infection [Recovering/Resolving]
  - Influenza [Recovering/Resolving]
  - Pneumonia [Recovering/Resolving]
  - Cardiac valve disease [Recovering/Resolving]
  - Wound infection staphylococcal [Unknown]
